FAERS Safety Report 15682722 (Version 3)
Quarter: 2019Q3

REPORT INFORMATION
  Report Type: Report from Study
  Country: JP (occurrence: JP)
  Receive Date: 20181203
  Receipt Date: 20190709
  Transmission Date: 20191004
  Serious: Yes (Hospitalization, Other)
  Sender: FDA-Public Use
  Company Number: JP-ALXN-A201815379AA

PATIENT

DRUGS (11)
  1. ALFAROL [Concomitant]
     Active Substance: ALFACALCIDOL
     Indication: HYPOPHOSPHATASIA
     Dosage: 0.08 ?G, QD
     Route: 048
     Dates: start: 20181102, end: 20190617
  2. MILRINONE [Concomitant]
     Active Substance: MILRINONE
     Indication: PRODUCT USED FOR UNKNOWN INDICATION
     Dosage: 0.2 ?G/KG/M, UNK
     Route: 042
     Dates: start: 20181019, end: 20181024
  3. MEYLON [Concomitant]
     Active Substance: SODIUM BICARBONATE
     Indication: PRODUCT USED FOR UNKNOWN INDICATION
     Dosage: 0.2 MEQ/KG/N, UNK
     Route: 042
     Dates: start: 20181019, end: 20181020
  4. BEESIX [Concomitant]
     Indication: HYPOPHOSPHATASIA
     Dosage: 30 MG, QD
     Route: 042
     Dates: start: 20181019, end: 20181027
  5. KAKODIN [Concomitant]
     Indication: PRODUCT USED FOR UNKNOWN INDICATION
     Dosage: 12 R, UNK
     Route: 042
     Dates: start: 20181019, end: 20181026
  6. CALCIUM LACTATE [Concomitant]
     Active Substance: CALCIUM LACTATE
     Indication: HYPOPHOSPHATASIA
     Dosage: 0.3 G, BID
     Route: 048
     Dates: start: 20181101, end: 20190604
  7. PHOSRIBBON [Concomitant]
     Indication: HYPOPHOSPHATASIA
     Dosage: 50 MG, BID
     Route: 048
     Dates: start: 20181201, end: 20190604
  8. DOBUTAMINE [Concomitant]
     Active Substance: DOBUTAMINE HYDROCHLORIDE
     Indication: PRODUCT USED FOR UNKNOWN INDICATION
     Dosage: 12 R, UNK
     Route: 042
     Dates: start: 20181019, end: 20181026
  9. NORADRENALINE                      /00127501/ [Concomitant]
     Active Substance: NOREPINEPHRINE
     Indication: PRODUCT USED FOR UNKNOWN INDICATION
     Dosage: 0.6 ?G/KG/M, UNK
     Route: 042
     Dates: start: 20181019, end: 20181024
  10. FENTANYL. [Concomitant]
     Active Substance: FENTANYL
     Indication: PRODUCT USED FOR UNKNOWN INDICATION
     Dosage: 2.3 ?G/KG/N, UNK
     Route: 042
     Dates: start: 20181019, end: 20181022
  11. STRENSIQ [Suspect]
     Active Substance: ASFOTASE ALFA
     Indication: HYPOPHOSPHATASIA
     Dosage: 2 MG/KG, TIW
     Route: 058
     Dates: start: 20181019

REACTIONS (4)
  - Tracheomalacia [Not Recovered/Not Resolved]
  - Bone deformity [Unknown]
  - Tracheal ulcer [Unknown]
  - Constipation [Unknown]

NARRATIVE: CASE EVENT DATE: 20181114
